FAERS Safety Report 12791033 (Version 1)
Quarter: 2016Q3

REPORT INFORMATION
  Report Type: Spontaneous
  Country: US (occurrence: US)
  Receive Date: 20160929
  Receipt Date: 20160929
  Transmission Date: 20161109
  Serious: No
  Sender: FDA-Public Use
  Company Number: US-PFIZER INC-2016452423

PATIENT
  Age: 66 Year
  Sex: Female

DRUGS (1)
  1. IBRANCE [Suspect]
     Active Substance: PALBOCICLIB
     Indication: BREAST CANCER IN SITU
     Dosage: UNK, CYCLIC, (7 DAY CYCLE)
     Dates: start: 20160429

REACTIONS (2)
  - Mouth ulceration [Recovered/Resolved]
  - Fatigue [Unknown]
